FAERS Safety Report 24618245 (Version 1)
Quarter: 2024Q4

REPORT INFORMATION
  Report Type: Report from Study
  Country: US (occurrence: US)
  Receive Date: 20241114
  Receipt Date: 20241114
  Transmission Date: 20250115
  Serious: Yes (Hospitalization)
  Sender: ABBVIE
  Company Number: US-ABBVIE-5999757

PATIENT
  Age: 53 Year
  Sex: Female

DRUGS (4)
  1. RINVOQ [Suspect]
     Active Substance: UPADACITINIB
     Indication: Colitis ulcerative
     Dosage: FORM STRENGTH: 45 MG. LAST ADMIN DATE 2024 FOR 8 WEEKS
     Route: 048
     Dates: start: 20240927
  2. RINVOQ [Suspect]
     Active Substance: UPADACITINIB
     Indication: Colitis ulcerative
     Dosage: FORM STRENGTH: 45 MG. LAST ADMIN DATE OCT 2024.
     Route: 048
     Dates: start: 20241002
  3. RINVOQ [Suspect]
     Active Substance: UPADACITINIB
     Indication: Colitis ulcerative
     Dosage: FORM STRENGTH: 45 MG
     Route: 048
     Dates: start: 20241013, end: 20241027
  4. RINVOQ [Suspect]
     Active Substance: UPADACITINIB
     Indication: Colitis ulcerative
     Dosage: FORM STRENGTH: 45 MG
     Route: 048
     Dates: start: 20241108

REACTIONS (8)
  - Heart rate increased [Unknown]
  - Sepsis [Unknown]
  - Chills [Unknown]
  - Gastric infection [Unknown]
  - Unevaluable event [Unknown]
  - Muscle spasms [Unknown]
  - Norovirus infection [Unknown]
  - Dehydration [Unknown]

NARRATIVE: CASE EVENT DATE: 20241001
